FAERS Safety Report 6155827-5 (Version None)
Quarter: 2009Q2

REPORT INFORMATION
  Report Type: 
  Country: None (occurrence: None)
  Receive Date: 20090415
  Receipt Date: 20090403
  Transmission Date: 20091009
  Serious: Yes (Life-Threatening, Hospitalization, Other)
  Sender: FDA-Public Use
  Company Number: DE-PFIZER INC-2009192972

PATIENT

DRUGS (4)
  1. SOMATROPIN [Suspect]
     Indication: HYPOPITUITARISM
     Dosage: 0.5 MG, 1X/DAY
     Route: 058
     Dates: start: 20070503
  2. LEVOTHYROXINE SODIUM [Suspect]
     Dosage: 50 UG, 1X/DAY
     Dates: start: 20080101
  3. DESMOPRESSIN ACETATE [Suspect]
     Dosage: 0.05 UL, 2X/DAY
     Dates: start: 20080101
  4. HYDROCORTISON [Suspect]
     Dosage: 7.5 - 0 - 5 MG, DAILY
     Dates: start: 20080101

REACTIONS (2)
  - NEOPLASM PROGRESSION [None]
  - SHUNT MALFUNCTION [None]
